FAERS Safety Report 9946044 (Version 1)
Quarter: 2014Q1

REPORT INFORMATION
  Report Type: Spontaneous
  Country: US (occurrence: US)
  Receive Date: 20140303
  Receipt Date: 20140303
  Transmission Date: 20141002
  Serious: No
  Sender: FDA-Public Use
  Company Number: US-AMGEN-USASP2013085780

PATIENT
  Age: 43 Year
  Sex: Male

DRUGS (5)
  1. ENBREL [Suspect]
     Indication: RHEUMATOID ARTHRITIS
     Dosage: UNK UNK, QWK
     Route: 065
     Dates: start: 201308
  2. ENBREL [Suspect]
     Indication: PSORIATIC ARTHROPATHY
  3. ENBREL [Suspect]
     Indication: PSORIASIS
  4. CYMBALTA [Concomitant]
     Dosage: UNK
     Route: 065
  5. METHOTREXATE [Concomitant]
     Dosage: 6 PIILS WEEKLY

REACTIONS (7)
  - Arthralgia [Unknown]
  - Musculoskeletal pain [Unknown]
  - Pain [Unknown]
  - Joint crepitation [Unknown]
  - Fibromyalgia [Recovered/Resolved]
  - Dizziness [Recovered/Resolved]
  - Psoriasis [Not Recovered/Not Resolved]
